FAERS Safety Report 6160834-2 (Version None)
Quarter: 2009Q2

REPORT INFORMATION
  Report Type: 
  Country: None (occurrence: None)
  Receive Date: 20090420
  Receipt Date: 20090406
  Transmission Date: 20091009
  Serious: Yes (Other)
  Sender: FDA-Public Use
  Company Number: JP-ROCHE-624482

PATIENT
  Sex: Male
  Weight: 30 kg

DRUGS (6)
  1. TAMIFLU [Suspect]
     Indication: INFLUENZA
     Route: 048
     Dates: start: 20090323, end: 20090323
  2. PERIACTIN [Concomitant]
     Dosage: FORM: ORAL FORMULATION (NOT OTHERWISE SPECIFIED)
     Route: 048
     Dates: start: 20090323, end: 20090326
  3. ASVERIN [Concomitant]
     Dosage: FORM: ORAL FORMULATION (NOT OTHERWISE SPECIFIED)
     Route: 048
     Dates: start: 20090323, end: 20090326
  4. MUCODYNE [Concomitant]
     Dosage: FORM: ORAL FORMULATION (NOT OTHERWISE SPECIFIED)
     Route: 048
     Dates: start: 20090323, end: 20090326
  5. HOKUNALIN [Concomitant]
     Dosage: DRUG REPORTED: HOKUNALIN:TAPE(TULOBUTEROL), FORM: TAPE
     Route: 062
     Dates: start: 20090323, end: 20090326
  6. ACETAMINOPHEN [Concomitant]
     Dosage: ORAL FORMULATION (NOT OTHERWISE SPECIFIED);TAKEN AS NEEDED: 0.3G
     Route: 048
     Dates: start: 20090323, end: 20090323

REACTIONS (1)
  - ABNORMAL BEHAVIOUR [None]
